FAERS Safety Report 8048647-8 (Version None)
Quarter: 2012Q1

REPORT INFORMATION
  Report Type: 
  Country: None (occurrence: None)
  Receive Date: 20120117
  Receipt Date: 20120109
  Transmission Date: 20120608
  Serious: Yes (Hospitalization)
  Sender: FDA-Public Use
  Company Number: SE-PERRIGO-12SE000133

PATIENT
  Age: 37 Year
  Sex: Female

DRUGS (3)
  1. FLUCLOXACILLIN [Suspect]
     Indication: MASTITIS
  2. BROMOCRIPTINE MESYLATE [Suspect]
     Indication: LACTATION PUERPERAL INCREASED
     Dosage: 2.5 MG, UNK
     Route: 048
  3. FLUCLOXACILLIN [Suspect]
     Indication: BREAST ENGORGEMENT
     Dosage: UNK
     Route: 048

REACTIONS (6)
  - DYSPNOEA [None]
  - ARTERIOSPASM CORONARY [None]
  - ACUTE CORONARY SYNDROME [None]
  - VENTRICULAR HYPOKINESIA [None]
  - STRESS CARDIOMYOPATHY [None]
  - CHEST DISCOMFORT [None]
